FAERS Safety Report 9836941 (Version 2)
Quarter: 2014Q1

REPORT INFORMATION
  Report Type: Spontaneous
  Country: US (occurrence: US)
  Receive Date: 20140123
  Receipt Date: 20140207
  Transmission Date: 20141002
  Serious: No
  Sender: FDA-Public Use
  Company Number: US-PFIZER INC-2014017041

PATIENT
  Age: 61 Year
  Sex: Female
  Weight: 64.4 kg

DRUGS (1)
  1. PREMARIN [Suspect]
     Indication: VULVOVAGINAL DRYNESS
     Dosage: UNK, TWO TO THREE TIMES A WEEK
     Route: 067

REACTIONS (1)
  - Drug ineffective [Unknown]
